FAERS Safety Report 6774898-6 (Version None)
Quarter: 2010Q2

REPORT INFORMATION
  Report Type: 
  Country: None (occurrence: None)
  Receive Date: 20100616
  Receipt Date: 20100616
  Transmission Date: 20101027
  Serious: Yes (Life-Threatening, Disabling, Other)
  Sender: FDA-Public Use
  Company Number: None

PATIENT
  Age: 20 Year
  Sex: Female
  Weight: 77.1115 kg

DRUGS (2)
  1. CYMBALTA [Suspect]
     Indication: MAJOR DEPRESSION
     Dosage: 60 MG TWICE DAILY PO
     Route: 048
     Dates: start: 20091012
  2. DULOXETIME HYDROCHLORIDE [Suspect]

REACTIONS (15)
  - AFFECT LABILITY [None]
  - AGGRESSION [None]
  - ANGER [None]
  - COORDINATION ABNORMAL [None]
  - CRYING [None]
  - DRUG WITHDRAWAL SYNDROME [None]
  - DRY MOUTH [None]
  - FALL [None]
  - GAIT DISTURBANCE [None]
  - HYPERSOMNIA [None]
  - SUICIDAL IDEATION [None]
  - THINKING ABNORMAL [None]
  - TREMOR [None]
  - VERBAL ABUSE [None]
  - VISION BLURRED [None]
